FAERS Safety Report 17459863 (Version 7)
Quarter: 2021Q3

REPORT INFORMATION
  Report Type: Spontaneous
  Country: US (occurrence: US)
  Receive Date: 20200226
  Receipt Date: 20210921
  Transmission Date: 20211014
  Serious: Yes (Death, Hospitalization, Other)
  Sender: FDA-Public Use
  Company Number: US-SA-2020SA049329

PATIENT
  Age: 67 Year
  Sex: Female
  Weight: 84.9 kg

DRUGS (3)
  1. CAPRELSA [Suspect]
     Active Substance: VANDETANIB
     Dosage: 300 MG, QD
     Route: 048
     Dates: start: 202001
  2. CAPRELSA [Suspect]
     Active Substance: VANDETANIB
     Dosage: 300 MG, QD
     Route: 048
     Dates: start: 20191230
  3. CAPRELSA [Suspect]
     Active Substance: VANDETANIB
     Indication: THYROID CANCER
     Dosage: 300 MG, QD
     Route: 048
     Dates: start: 20191230

REACTIONS (9)
  - Ageusia [Unknown]
  - Unevaluable event [Unknown]
  - Sinusitis [Unknown]
  - Death [Fatal]
  - Anosmia [Unknown]
  - Diarrhoea [Unknown]
  - Blood calcium decreased [Unknown]
  - Bladder cancer [Unknown]
  - Hospitalisation [Unknown]

NARRATIVE: CASE EVENT DATE: 20210913
